FAERS Safety Report 7022102-6 (Version None)
Quarter: 2010Q3

REPORT INFORMATION
  Report Type: 
  Country: None (occurrence: None)
  Receive Date: 20100930
  Receipt Date: 20100929
  Transmission Date: 20110219
  Serious: Yes (Hospitalization)
  Sender: FDA-Public Use
  Company Number: RU-BRISTOL-MYERS SQUIBB COMPANY-15310493

PATIENT
  Age: 61 Year
  Sex: Male
  Weight: 71 kg

DRUGS (3)
  1. CETUXIMAB [Suspect]
     Indication: GASTROOESOPHAGEAL CANCER
     Dosage: RECENT INF:04AUG2010; NO OF INF:3
     Route: 042
     Dates: start: 20100721
  2. CISPLATIN [Suspect]
     Indication: GASTROOESOPHAGEAL CANCER
     Dosage: RECENT INF:21JUL2010 ON DAY 1 OF CYCLE
     Route: 042
     Dates: start: 20100721
  3. XELODA [Suspect]
     Indication: GASTROOESOPHAGEAL CANCER
     Dosage: RECENT INF:04AUG2010 ON DAY 1-15
     Route: 048
     Dates: start: 20100721

REACTIONS (1)
  - ATRIAL FIBRILLATION [None]
